FAERS Safety Report 6196756-0 (Version None)
Quarter: 2009Q2

REPORT INFORMATION
  Report Type: 
  Country: None (occurrence: None)
  Receive Date: 20090518
  Receipt Date: 20090518
  Transmission Date: 20091009
  Serious: No
  Sender: FDA-Public Use
  Company Number: None

PATIENT
  Age: 75 Year
  Sex: Male

DRUGS (2)
  1. VECURONIUM BROMIDE  1 MG/ ML BEDFORD LABS [Suspect]
     Indication: NEUROMUSCULAR BLOCKADE
     Dosage: 10 MG IV BOLUS
     Route: 040
     Dates: start: 20090514, end: 20090514
  2. VECURONIUM BROMIDE  1 MG/ ML BEDFORD LABS [Suspect]
     Indication: PARALYSIS
     Dosage: 10 MG IV BOLUS
     Route: 040
     Dates: start: 20090514, end: 20090514

REACTIONS (1)
  - DRUG EFFECT DECREASED [None]
